FAERS Safety Report 15771781 (Version 1)
Quarter: 2018Q4

REPORT INFORMATION
  Report Type: Spontaneous
  Country: US (occurrence: US)
  Receive Date: 20181228
  Receipt Date: 20181228
  Transmission Date: 20190205
  Serious: Yes (Death)
  Sender: FDA-Public Use
  Company Number: None

PATIENT
  Age: 68 Year
  Sex: Male

DRUGS (11)
  1. SILDENAFIL. [Suspect]
     Active Substance: SILDENAFIL
     Indication: COR PULMONALE
     Route: 048
     Dates: start: 20180125
  2. TRACLEER [Concomitant]
     Active Substance: BOSENTAN
  3. DEXILANT [Concomitant]
     Active Substance: DEXLANSOPRAZOLE
  4. FLONASE ALGY [Concomitant]
  5. METHOTREXATE. [Concomitant]
     Active Substance: METHOTREXATE
  6. SPIRONOLACT [Concomitant]
     Active Substance: SPIRONOLACTONE
  7. TORSEMIDE. [Concomitant]
     Active Substance: TORSEMIDE
  8. FOLIC ACID. [Concomitant]
     Active Substance: FOLIC ACID
  9. SPIRIVA [Concomitant]
     Active Substance: TIOTROPIUM BROMIDE MONOHYDRATE
  10. PREDNISONE. [Concomitant]
     Active Substance: PREDNISONE
  11. VITAMIN A [Concomitant]
     Active Substance: VITAMIN A

REACTIONS (1)
  - Respiratory arrest [None]

NARRATIVE: CASE EVENT DATE: 20181203
